FAERS Safety Report 19705578 (Version 2)
Quarter: 2021Q4

REPORT INFORMATION
  Report Type: Report from Study
  Country: BR (occurrence: BR)
  Receive Date: 20210817
  Receipt Date: 20211114
  Transmission Date: 20220304
  Serious: Yes (Disabling)
  Sender: FDA-Public Use
  Company Number: BR-ABBVIE-21K-020-4037269-00

PATIENT
  Sex: Female

DRUGS (1)
  1. HUMIRA [Suspect]
     Active Substance: ADALIMUMAB
     Indication: Rheumatoid arthritis
     Dosage: UNSPECIFIED DOSE
     Route: 058

REACTIONS (2)
  - Disability [Not Recovered/Not Resolved]
  - Pain [Not Recovered/Not Resolved]
